FAERS Safety Report 16801030 (Version 1)
Quarter: 2019Q4

REPORT INFORMATION
  Report Type: Spontaneous
  Country: US (occurrence: US)
  Receive Date: 20190912
  Receipt Date: 20190912
  Transmission Date: 20200122
  Serious: Yes (Other)
  Sender: FDA-Public Use
  Company Number: None

PATIENT
  Age: 74 Year
  Sex: Female
  Weight: 90 kg

DRUGS (2)
  1. GAMUNEX-C [Suspect]
     Active Substance: HUMAN IMMUNOGLOBULIN G
     Indication: PRODUCT USED FOR UNKNOWN INDICATION
     Dosage: ?          OTHER FREQUENCY:EVERY 3 WEEKS;?
     Route: 042
  2. GAMUNEX-C [Suspect]
     Active Substance: HUMAN IMMUNOGLOBULIN G
     Indication: PRODUCT USED FOR UNKNOWN INDICATION
     Dosage: ?          OTHER FREQUENCY:EVERY 3 WEEKS;?
     Route: 042

REACTIONS (1)
  - Migraine [None]

NARRATIVE: CASE EVENT DATE: 20190909
